FAERS Safety Report 14319462 (Version 2)
Quarter: 2018Q3

REPORT INFORMATION
  Report Type: Spontaneous
  Country: IT (occurrence: IT)
  Receive Date: 20171222
  Receipt Date: 20180702
  Transmission Date: 20181010
  Serious: Yes (Hospitalization)
  Sender: FDA-Public Use
  Company Number: IT-TEVA-2017-IT-838267

PATIENT
  Age: 6 Year
  Sex: Female
  Weight: 24 kg

DRUGS (27)
  1. SANDIMMUN [Concomitant]
     Active Substance: CYCLOSPORINE
     Dates: start: 20161220
  2. BUSILVEX [Suspect]
     Active Substance: BUSULFAN
     Indication: ALLOGENIC BONE MARROW TRANSPLANTATION THERAPY
     Route: 042
     Dates: start: 20161214, end: 20161217
  3. LASIX [Concomitant]
     Active Substance: FUROSEMIDE
     Dates: start: 20161212, end: 20161212
  4. URSODEOXYCHOLIC ACID [Concomitant]
     Active Substance: URSODIOL
     Dates: start: 20161212, end: 20170120
  5. PERFALGAN [Concomitant]
     Active Substance: ACETAMINOPHEN
     Dates: start: 20161220, end: 20161221
  6. URBASON [Concomitant]
     Active Substance: METHYLPREDNISOLONE
     Route: 042
     Dates: start: 20161220, end: 20161221
  7. ALOXI [Concomitant]
     Active Substance: PALONOSETRON HYDROCHLORIDE
     Route: 042
     Dates: start: 20161214, end: 20161217
  8. CIPROFLOXACIN. [Concomitant]
     Active Substance: CIPROFLOXACIN
     Dates: start: 20161212, end: 20161229
  9. ENDOXAN [Suspect]
     Active Substance: CYCLOPHOSPHAMIDE
     Indication: ALLOGENIC BONE MARROW TRANSPLANTATION THERAPY
     Route: 042
     Dates: start: 20161218, end: 20161219
  10. ALKERAN [Suspect]
     Active Substance: MELPHALAN
     Indication: ALLOGENIC BONE MARROW TRANSPLANTATION THERAPY
     Dosage: 50/10 MG/ML; 123 MG IN TOTAL
     Route: 042
     Dates: start: 20161220, end: 20161220
  11. RANITIDINE. [Concomitant]
     Active Substance: RANITIDINE
     Route: 042
     Dates: start: 20161213
  12. HEPARIN [Concomitant]
     Active Substance: HEPARIN SODIUM
     Route: 042
     Dates: start: 20161213
  13. TRIMETON [Concomitant]
     Active Substance: CHLORPHENIRAMINE MALEATE
     Dates: start: 20161220, end: 20161221
  14. PRIVIGEN [Concomitant]
     Active Substance: HUMAN IMMUNOGLOBULIN G
     Dates: start: 20161217, end: 20170109
  15. LASIX [Concomitant]
     Active Substance: FUROSEMIDE
     Dates: start: 20161213
  16. ANTI?THYMOCYTE GLOBULIN (RABBIT) NOS [Suspect]
     Active Substance: LAPINE T-LYMPHOCYTE IMMUNE GLOBULIN
     Indication: ALLOGENIC BONE MARROW TRANSPLANTATION THERAPY
     Route: 042
     Dates: start: 20161220, end: 20161221
  17. LASIX [Concomitant]
     Active Substance: FUROSEMIDE
     Dates: start: 20161212, end: 20161212
  18. ACICLOVIR [Concomitant]
     Active Substance: ACYCLOVIR
     Dates: start: 20161212, end: 20161218
  19. METHOTREXATE. [Suspect]
     Active Substance: METHOTREXATE
     Indication: ALLOGENIC BONE MARROW TRANSPLANTATION THERAPY
     Route: 042
     Dates: start: 20161223, end: 20161228
  20. BACTRIM [Concomitant]
     Active Substance: SULFAMETHOXAZOLE\TRIMETHOPRIM
     Dosage: UNKNOWN
  21. ITRACONAZOLE. [Concomitant]
     Active Substance: ITRACONAZOLE
     Route: 048
     Dates: start: 20161212, end: 20161229
  22. ACICLOVIR [Concomitant]
     Active Substance: ACYCLOVIR
     Dates: start: 20161219
  23. TEGRETOL [Concomitant]
     Active Substance: CARBAMAZEPINE
     Dates: start: 20161213, end: 20161218
  24. NYSTATIN. [Concomitant]
     Active Substance: NYSTATIN
     Route: 048
     Dates: start: 20161212, end: 20170120
  25. EMEND [Concomitant]
     Active Substance: APREPITANT
     Dates: start: 20161214, end: 20161216
  26. DELTACORTENE [Concomitant]
     Active Substance: PREDNISONE
     Dates: start: 20161213, end: 20161220
  27. DIAMINOCILLINA [Concomitant]
     Active Substance: PENICILLIN G BENZATHINE
     Dates: start: 20161213

REACTIONS (6)
  - Diarrhoea [Recovering/Resolving]
  - Culture stool positive [Recovering/Resolving]
  - Abdominal pain [Recovering/Resolving]
  - Erythema [Recovering/Resolving]
  - Palmar erythema [Recovering/Resolving]
  - Conjunctivitis [Recovering/Resolving]

NARRATIVE: CASE EVENT DATE: 20161223
